FAERS Safety Report 18769069 (Version 2)
Quarter: 2021Q1

REPORT INFORMATION
  Report Type: Report from Study
  Country: DE (occurrence: DE)
  Receive Date: 20210121
  Receipt Date: 20210201
  Transmission Date: 20210419
  Serious: Yes (Other)
  Sender: FDA-Public Use
  Company Number: DE-EMD SERONO-9213264

PATIENT
  Age: 16 Month
  Sex: Male

DRUGS (1)
  1. REBIF [Suspect]
     Active Substance: INTERFERON BETA-1A
     Indication: MULTIPLE SCLEROSIS
     Route: 064
     Dates: end: 2019

REACTIONS (2)
  - Acute lymphocytic leukaemia [Recovered/Resolved]
  - Foetal exposure during pregnancy [Recovered/Resolved]
